FAERS Safety Report 22398240 (Version 1)
Quarter: 2023Q2

REPORT INFORMATION
  Report Type: Report from Study
  Country: AU (occurrence: AU)
  Receive Date: 20230602
  Receipt Date: 20230602
  Transmission Date: 20230721
  Serious: Yes (Hospitalization, Other)
  Sender: FDA-Public Use
  Company Number: AU-BRISTOL-MYERS SQUIBB COMPANY-2023-076141

PATIENT
  Age: 73 Year
  Sex: Male

DRUGS (3)
  1. NIVOLUMAB [Suspect]
     Active Substance: NIVOLUMAB
     Indication: Prostate cancer metastatic
     Route: 042
     Dates: start: 20221123, end: 20221214
  2. IPILIMUMAB [Suspect]
     Active Substance: IPILIMUMAB
     Indication: Prostate cancer metastatic
     Route: 042
     Dates: start: 20221123, end: 20221123
  3. LUTETIUM LU-177 VIPIVOTIDE TETRAXETAN [Suspect]
     Active Substance: LUTETIUM LU-177 VIPIVOTIDE TETRAXETAN
     Indication: Prostate cancer metastatic
     Route: 042
     Dates: start: 20221124, end: 20221124

REACTIONS (2)
  - Immune-mediated enterocolitis [Not Recovered/Not Resolved]
  - Immune-mediated gastritis [Not Recovered/Not Resolved]

NARRATIVE: CASE EVENT DATE: 20230103
